FAERS Safety Report 5329721-3 (Version None)
Quarter: 2007Q2

REPORT INFORMATION
  Report Type: 
  Country: None (occurrence: None)
  Receive Date: 20070521
  Receipt Date: 20070508
  Transmission Date: 20071010
  Serious: Yes (Hospitalization, Other)
  Sender: FDA-Public Use
  Company Number: GB-NOVOPROD-263502

PATIENT
  Age: 32 Year
  Sex: Female

DRUGS (7)
  1. ACTRAPID [Suspect]
     Indication: DIABETES MELLITUS INSULIN-DEPENDENT
     Dosage: 22+20+20
     Route: 058
  2. ACTRAPID [Suspect]
     Dosage: 8+8+8
  3. INSULATARD [Suspect]
     Indication: DIABETES MELLITUS INSULIN-DEPENDENT
     Dosage: 23 IU, BEFORE BED
     Route: 058
  4. INSULATARD [Suspect]
     Dosage: 15 IU, QD
  5. BETAMETHASONE [Concomitant]
     Indication: RESPIRATORY DISTRESS
     Dosage: 12 MG, QD FOR 2 DAYS
     Route: 030
  6. HYDROCORTISONE [Concomitant]
     Indication: DRUG USE FOR UNKNOWN INDICATION
     Dosage: 40 MG, 20MG AM + 10MG PM
     Route: 048
  7. HYDROCORTISONE [Concomitant]
     Dosage: 30 UNK, UNK

REACTIONS (18)
  - ADRENAL INSUFFICIENCY [None]
  - ANOREXIA [None]
  - BLOOD CORTISOL DECREASED [None]
  - BLOOD PROLACTIN DECREASED [None]
  - DEPRESSED MOOD [None]
  - FATIGUE [None]
  - FEELING ABNORMAL [None]
  - FOETAL MOVEMENTS DECREASED [None]
  - HEADACHE [None]
  - HYPERGLYCAEMIA [None]
  - HYPERTENSION [None]
  - HYPOGLYCAEMIA [None]
  - OEDEMA PERIPHERAL [None]
  - PHOTOPHOBIA [None]
  - PITUITARY INFARCTION [None]
  - PREGNANCY [None]
  - PROTEINURIA [None]
  - SUBARACHNOID HAEMORRHAGE [None]
